FAERS Safety Report 15969590 (Version 1)
Quarter: 2019Q1

REPORT INFORMATION
  Report Type: Spontaneous
  Country: US (occurrence: US)
  Receive Date: 20190215
  Receipt Date: 20190215
  Transmission Date: 20190418
  Serious: Yes (Hospitalization)
  Sender: FDA-Public Use
  Company Number: US-TEVA-2019-US-1011156

PATIENT
  Sex: Female

DRUGS (2)
  1. VITAMIN [Concomitant]
     Active Substance: VITAMINS
  2. PROGLYCEM [Suspect]
     Active Substance: DIAZOXIDE
     Indication: BLOOD GLUCOSE DECREASED
     Route: 065
     Dates: start: 20190207

REACTIONS (5)
  - Blood pressure decreased [Unknown]
  - Cellulitis [Unknown]
  - Feeling abnormal [Unknown]
  - Flushing [Unknown]
  - Dizziness [Unknown]
